FAERS Safety Report 15186858 (Version 2)
Quarter: 2019Q1

REPORT INFORMATION
  Report Type: Report from Study
  Country: US (occurrence: US)
  Receive Date: 20180723
  Receipt Date: 20190130
  Transmission Date: 20190417
  Serious: No
  Sender: FDA-Public Use
  Company Number: US-EXELIXIS-CABO-18012187

PATIENT
  Sex: Male

DRUGS (16)
  1. FLUTICASONE. [Concomitant]
     Active Substance: FLUTICASONE
  2. LISINOPRIL. [Concomitant]
     Active Substance: LISINOPRIL
  3. ACYCLOVIR. [Concomitant]
     Active Substance: ACYCLOVIR
  4. PRAVASTATIN. [Concomitant]
     Active Substance: PRAVASTATIN
  5. TRAMADOL. [Concomitant]
     Active Substance: TRAMADOL
  6. CABOMETYX [Suspect]
     Active Substance: CABOZANTINIB S-MALATE
     Indication: RENAL CANCER
     Dosage: 40 MG, QD
     Route: 048
     Dates: start: 20170628
  7. ALPRAZOLAM. [Concomitant]
     Active Substance: ALPRAZOLAM
  8. HYDROCODONE [Concomitant]
     Active Substance: HYDROCODONE
  9. INLYTA [Concomitant]
     Active Substance: AXITINIB
  10. CIPROFLOXACIN. [Concomitant]
     Active Substance: CIPROFLOXACIN
  11. CLOBETASOL [Concomitant]
     Active Substance: CLOBETASOL
  12. SUTENT [Concomitant]
     Active Substance: SUNITINIB MALATE
  13. METOPROLOL. [Concomitant]
     Active Substance: METOPROLOL
  14. ACETAMIN [Concomitant]
     Active Substance: ACETAMINOPHEN
  15. A-HYDROCORT [Concomitant]
     Active Substance: HYDROCORTISONE SODIUM SUCCINATE
  16. NITROGLYCERIN. [Concomitant]
     Active Substance: NITROGLYCERIN

REACTIONS (2)
  - Nausea [Unknown]
  - Depressed mood [Unknown]
